FAERS Safety Report 9112298 (Version 1)
Quarter: 2013Q1

REPORT INFORMATION
  Report Type: Spontaneous
  Country: US (occurrence: US)
  Receive Date: 20130219
  Receipt Date: 20130219
  Transmission Date: 20140127
  Serious: No
  Sender: FDA-Public Use
  Company Number: US-BRISTOL-MYERS SQUIBB COMPANY-16702318

PATIENT
  Age: 59 Year
  Sex: Female
  Weight: 66.66 kg

DRUGS (3)
  1. ORENCIA FOR INJ [Suspect]
     Indication: RHEUMATOID ARTHRITIS
     Dosage: LAST INF-MAY2012
     Route: 042
  2. TYLENOL [Concomitant]
     Indication: PAIN
  3. ARTHROTEC [Concomitant]

REACTIONS (2)
  - Sinusitis [Recovering/Resolving]
  - Oedema mouth [Not Recovered/Not Resolved]
